FAERS Safety Report 10393801 (Version 1)
Quarter: 2014Q3

REPORT INFORMATION
  Report Type: Report from Study
  Country: GB (occurrence: GB)
  Receive Date: 20140819
  Receipt Date: 20140819
  Transmission Date: 20150326
  Serious: Yes (Death)
  Sender: FDA-Public Use
  Company Number: GB-SA-2014SA111713

PATIENT

DRUGS (5)
  1. ANTI-THYMOCYTE GLOBULIN (RABBIT) [Suspect]
     Active Substance: LAPINE T-LYMPHOCYTE IMMUNE GLOBULIN
     Indication: BONE MARROW CONDITIONING REGIMEN
     Dosage: DOSE: 1.5 MG/KG INFUSED OVER 6 HRS FOR 3 DAYS (DAY-3,-2,-1)
     Route: 065
  2. TACROLIMUS. [Concomitant]
     Active Substance: TACROLIMUS
     Indication: PROPHYLAXIS AGAINST GRAFT VERSUS HOST DISEASE
  3. FLUDARABINE PHOSPHATE. [Suspect]
     Active Substance: FLUDARABINE PHOSPHATE
     Indication: BONE MARROW CONDITIONING REGIMEN
     Dosage: DOSE: 30 MG/M2 GIVEN OVER 30 MINUTES ON DAYS -4,-3,-2,-1
     Route: 042
  4. METHOTREXATE [Concomitant]
     Active Substance: METHOTREXATE
     Indication: PROPHYLAXIS AGAINST GRAFT VERSUS HOST DISEASE
     Route: 042
  5. MELPHALAN [Suspect]
     Active Substance: MELPHALAN
     Indication: BONE MARROW CONDITIONING REGIMEN
     Dosage: DOSE: 100 MG/M2 OVER 20 MINUTES ON DAY-1
     Route: 042

REACTIONS (1)
  - Death [Fatal]
